FAERS Safety Report 8413923-3 (Version None)
Quarter: 2012Q2

REPORT INFORMATION
  Report Type: 
  Country: None (occurrence: None)
  Receive Date: 20120605
  Receipt Date: 20120530
  Transmission Date: 20120825
  Serious: Yes (Other)
  Sender: FDA-Public Use
  Company Number: US-JNJFOC-20120601567

PATIENT
  Sex: Female
  Weight: 110.68 kg

DRUGS (17)
  1. FENTANYL-100 [Suspect]
     Dosage: 25.0 UG/HR AND 12.5 UG/HR   12.5 UG/HR: NDC-0781-7240-55)
     Route: 062
     Dates: start: 20120201, end: 20120525
  2. COUMADIN [Concomitant]
     Indication: DEEP VEIN THROMBOSIS
     Dosage: 10 GM PER 15 ML/1 TSP
     Route: 048
     Dates: start: 20110101
  3. AMITRIPTYLINE HCL [Concomitant]
     Indication: VERTIGO
     Route: 048
     Dates: start: 20020101
  4. HYOSCYAMINE [Concomitant]
     Indication: ABDOMINAL RIGIDITY
     Route: 048
     Dates: start: 20070101
  5. OXYCODONE [Concomitant]
     Indication: BREAKTHROUGH PAIN
     Dosage: 1-2
     Route: 048
     Dates: start: 20110101
  6. TIZANIDINE [Concomitant]
     Indication: MUSCLE RELAXANT THERAPY
     Dosage: 1-2
     Route: 048
     Dates: start: 20110101
  7. LACTULOSE [Concomitant]
     Indication: GASTROINTESTINAL DISORDER
     Dosage: 10 GM PER 15 ML/1 TSP
     Route: 048
     Dates: start: 20110101
  8. MEDAZINE [Concomitant]
     Indication: MIGRAINE
     Route: 048
     Dates: start: 20110101
  9. PRILOSEC [Concomitant]
     Indication: GASTROOESOPHAGEAL REFLUX DISEASE
     Route: 048
     Dates: start: 20090101
  10. VALIUM [Concomitant]
     Indication: MUSCLE RELAXANT THERAPY
     Dosage: 1-2
     Route: 048
     Dates: start: 20100101
  11. FENTANYL-100 [Suspect]
     Indication: ARTHRALGIA
     Route: 062
     Dates: start: 20120526
  12. FENTANYL-100 [Suspect]
     Route: 062
     Dates: start: 20120526
  13. FENTANYL-100 [Suspect]
     Indication: NECK PAIN
     Dosage: 25.0 UG/HR AND 12.5 UG/HR   12.5 UG/HR: NDC-0781-7240-55)
     Route: 062
     Dates: start: 20120201, end: 20120525
  14. FENTANYL-100 [Suspect]
     Indication: BACK PAIN
     Route: 062
     Dates: start: 20120526
  15. FENTANYL-100 [Suspect]
     Dosage: 25.0 UG/HR AND 12.5 UG/HR   12.5 UG/HR: NDC-0781-7240-55)
     Route: 062
     Dates: start: 20120201, end: 20120525
  16. RANITIDINE [Concomitant]
     Indication: GASTROOESOPHAGEAL REFLUX DISEASE
     Route: 048
     Dates: start: 20090101
  17. FOLIC ACID [Concomitant]
     Indication: DEEP VEIN THROMBOSIS
     Dosage: 10 GM PER 15 ML/1 TSP
     Route: 048
     Dates: start: 20000101

REACTIONS (2)
  - THROAT TIGHTNESS [None]
  - APPLICATION SITE REACTION [None]
